FAERS Safety Report 4369069-7 (Version None)
Quarter: 2004Q2

REPORT INFORMATION
  Report Type: 
  Country: None (occurrence: None)
  Receive Date: 20040528
  Receipt Date: 20040517
  Transmission Date: 20050107
  Serious: Yes (Other)
  Sender: FDA-Public Use
  Company Number: 2004213745BE

PATIENT
  Age: 78 Year
  Sex: Female

DRUGS (1)
  1. BEXTRA [Suspect]
     Indication: OSTEOARTHRITIS
     Dosage: ORAL
     Route: 048
     Dates: start: 20040101, end: 20040101

REACTIONS (3)
  - HYPERSENSITIVITY [None]
  - RASH [None]
  - SKIN DEPIGMENTATION [None]
